FAERS Safety Report 5677217-1 (Version None)
Quarter: 2008Q1

REPORT INFORMATION
  Report Type: 
  Country: None (occurrence: None)
  Receive Date: 20080324
  Receipt Date: 20080227
  Transmission Date: 20080703
  Serious: Yes (Hospitalization)
  Sender: FDA-Public Use
  Company Number: FR-GENENTECH-218885

PATIENT
  Sex: Female

DRUGS (7)
  1. TRASTUZUMAB [Suspect]
     Indication: BREAST CANCER METASTATIC
     Dosage: 4 MG/KG, 1/WEEK
     Route: 042
     Dates: start: 20050711, end: 20050711
  2. CAPECITABINE [Suspect]
     Indication: BREAST CANCER METASTATIC
     Dosage: 1000 MG/M2, BID
     Route: 048
     Dates: start: 20050711, end: 20050803
  3. VINORELBINE [Suspect]
     Indication: BREAST CANCER METASTATIC
     Dosage: 60 MG/M2, DAY1+8/Q3W
     Route: 048
     Dates: start: 20050711, end: 20050801
  4. ZOLPIDEM TARTRATE [Concomitant]
     Indication: INSOMNIA
     Dosage: 1 TABLET, QD
     Route: 048
  5. BROMAZEPAM [Concomitant]
     Indication: ANXIETY
     Dosage: 1 TABLET, QD
     Route: 048
  6. TRAMADOL HCL [Concomitant]
     Indication: BONE PAIN
     Dosage: UNK, PRN
     Route: 048
  7. ZOLEDRONIC ACID [Concomitant]
     Indication: METASTASES TO BONE
     Dosage: 4 MG, UNK
     Route: 042
     Dates: start: 20050615, end: 20050801

REACTIONS (4)
  - ANGINA PECTORIS [None]
  - ANXIETY [None]
  - HYPOKINESIA [None]
  - SINUS TACHYCARDIA [None]
